FAERS Safety Report 13992229 (Version 1)
Quarter: 2017Q3

REPORT INFORMATION
  Report Type: Spontaneous
  Country: US (occurrence: US)
  Receive Date: 20170920
  Receipt Date: 20170920
  Transmission Date: 20171128
  Serious: No
  Sender: FDA-Public Use
  Company Number: US-JNJFOC-20170814201

PATIENT
  Sex: Female

DRUGS (5)
  1. EFFEXOR [Concomitant]
     Active Substance: VENLAFAXINE HYDROCHLORIDE
     Indication: ANTIDEPRESSANT THERAPY
     Dosage: STRENGTH: 75 MG
     Route: 048
  2. INVEGA [Suspect]
     Active Substance: PALIPERIDONE
     Indication: ANXIETY
     Dosage: REDUCED DOSE
     Route: 048
     Dates: start: 2017, end: 201707
  3. INVEGA [Suspect]
     Active Substance: PALIPERIDONE
     Indication: ANXIETY
     Route: 048
     Dates: start: 2015
  4. RISPERDAL [Suspect]
     Active Substance: RISPERIDONE
     Indication: ANXIETY
     Route: 048
     Dates: start: 2012
  5. LAMICTAL [Concomitant]
     Active Substance: LAMOTRIGINE
     Indication: AFFECT LABILITY
     Route: 048

REACTIONS (20)
  - Memory impairment [Unknown]
  - Mental disorder [Unknown]
  - Eating disorder [Unknown]
  - General physical health deterioration [Unknown]
  - Psychotic disorder [Recovered/Resolved]
  - Apathy [Unknown]
  - Adverse drug reaction [Unknown]
  - Abnormal behaviour [Unknown]
  - Dissociation [Recovered/Resolved]
  - Drug dose omission [Unknown]
  - Unevaluable event [Unknown]
  - Weight increased [Unknown]
  - Educational problem [Unknown]
  - Feeling abnormal [Unknown]
  - Drug ineffective [Unknown]
  - Impaired self-care [Unknown]
  - Hypersomnia [Recovering/Resolving]
  - Fatigue [Unknown]
  - Depression [Unknown]
  - Product use in unapproved indication [Unknown]

NARRATIVE: CASE EVENT DATE: 2012
